FAERS Safety Report 17295849 (Version 2)
Quarter: 2020Q2

REPORT INFORMATION
  Report Type: Report from Study
  Country: None (occurrence: US)
  Receive Date: 20200121
  Receipt Date: 20200416
  Transmission Date: 20200713
  Serious: Yes (Other)
  Sender: FDA-Public Use
  Company Number: US-ABBVIE-19K-163-3012492-00

PATIENT
  Sex: Male

DRUGS (4)
  1. HUMIRA [Suspect]
     Active Substance: ADALIMUMAB
     Dosage: CITRATE FREE
     Route: 058
     Dates: start: 2015
  2. HUMIRA [Suspect]
     Active Substance: ADALIMUMAB
     Route: 058
  3. HUMIRA [Suspect]
     Active Substance: ADALIMUMAB
     Indication: CROHN^S DISEASE
     Route: 058
  4. HUMIRA [Suspect]
     Active Substance: ADALIMUMAB
     Indication: CROHN^S DISEASE
     Dosage: CITRATE FREE
     Route: 058
     Dates: start: 2015

REACTIONS (19)
  - Gait disturbance [Recovering/Resolving]
  - Bone density abnormal [Unknown]
  - Neuropathy peripheral [Recovering/Resolving]
  - Back pain [Recovering/Resolving]
  - Arthropathy [Recovering/Resolving]
  - Post-traumatic pain [Unknown]
  - Hypoaesthesia [Recovering/Resolving]
  - Injection site pain [Recovered/Resolved]
  - Spinal column injury [Recovering/Resolving]
  - Spinal column injury [Recovering/Resolving]
  - Hypophagia [Not Recovered/Not Resolved]
  - Irritable bowel syndrome [Not Recovered/Not Resolved]
  - Weight decreased [Not Recovered/Not Resolved]
  - Muscle tightness [Recovering/Resolving]
  - Fall [Recovering/Resolving]
  - Dysstasia [Unknown]
  - Vitamin D decreased [Unknown]
  - Arthritis [Not Recovered/Not Resolved]
  - Peripheral swelling [Recovering/Resolving]

NARRATIVE: CASE EVENT DATE: 2019
